FAERS Safety Report 25941015 (Version 2)
Quarter: 2025Q4

REPORT INFORMATION
  Report Type: Spontaneous
  Country: GB (occurrence: GB)
  Receive Date: 20251020
  Receipt Date: 20251126
  Transmission Date: 20260118
  Serious: Yes (Hospitalization)
  Sender: MYLAN
  Company Number: GB-MYLANLABS-2025M1084430

PATIENT
  Age: 37 Year
  Sex: Male
  Weight: 58.5 kg

DRUGS (20)
  1. CLOZARIL [Suspect]
     Active Substance: CLOZAPINE
     Indication: Product used for unknown indication
     Dosage: UNK
  2. CLOZARIL [Suspect]
     Active Substance: CLOZAPINE
     Dosage: 150 MILLIGRAM, QD (ONCE EVERY DAY, MORNING (06:00 TO 10:00)))
     Dates: start: 20250127
  3. CLOZARIL [Suspect]
     Active Substance: CLOZAPINE
     Dosage: 200 MILLIGRAM, QD (ONCE EVERY DAY,  NIGHT (20:00 TO 02:00)))
     Dates: start: 20250207
  4. SENNA [Concomitant]
     Active Substance: SENNOSIDES
     Dosage: 15 MILLIGRAM, PM (ONCE EVERY DAY AT NIGHT)
     Dates: start: 20200506
  5. LORAZEPAM [Concomitant]
     Active Substance: LORAZEPAM
     Dosage: UNK, PRN (1 TO 2 MILLIGRAM, MAX DOSE IN 24 HOURS WAS 4 MILLIGRAM. MIN GAP BETWEEN ADMINISTRATIONS WAS 4 HOURS)
  6. MELATONIN [Concomitant]
     Active Substance: MELATONIN
     Dosage: 3 MILLIGRAM, PM (ONCE EVERY DAY, AT NIGHT)
     Dates: start: 20201208
  7. ACETAMINOPHEN [Concomitant]
     Active Substance: ACETAMINOPHEN
     Dosage: 1 GRAM, PM (MAX DOSE IN 24 HOURS: 4G. MIN GAP BETWEEN ADMINISTRATIONS: 4 HOURS)
  8. PROPRANOLOL [Concomitant]
     Active Substance: PROPRANOLOL HYDROCHLORIDE
     Dosage: 10 MILLIGRAM, BID (LUNCH, NIGHT)
     Dates: start: 20201110
  9. NALTREXONE HYDROCHLORIDE [Concomitant]
     Active Substance: NALTREXONE HYDROCHLORIDE
     Dosage: 25 MILLIGRAM, BID (MORNING, EVENING. FOR IMPULSE CONTROL)
     Dates: start: 20210707
  10. LITHIUM [Concomitant]
     Active Substance: LITHIUM
     Dosage: 600 MILLIGRAM, PM (NIGHT (20:00 TO 02:00))
     Dates: start: 20220525
  11. DIAZEPAM [Concomitant]
     Active Substance: DIAZEPAM
     Dosage: 5 MILLIGRAM, TID (MORNING (06:00 TO 10:00), LUNCH (10:00 TO 14:00), EVENING (16:00 TO 20:00))
     Dates: start: 20221206
  12. CARBOHYDRATES\FATTY ACIDS\MINERALS\PROTEIN\VITAMINS [Concomitant]
     Active Substance: CARBOHYDRATES\FATTY ACIDS\MINERALS\PROTEIN\VITAMINS
     Dosage: 200 MILLILITER, QD ( LUNCH (10:00 TO 14:00).))
     Dates: start: 20230525
  13. CARBOHYDRATES\FATTY ACIDS\MINERALS\PROTEIN\VITAMINS [Concomitant]
     Active Substance: CARBOHYDRATES\FATTY ACIDS\MINERALS\PROTEIN\VITAMINS
     Dosage: 200 MILLILITER, QD (MORNING (06:00 TO 10:00).)
     Dates: start: 20230721
  14. CARBOHYDRATES\FATTY ACIDS\MINERALS\PROTEIN\VITAMINS [Concomitant]
     Active Substance: CARBOHYDRATES\FATTY ACIDS\MINERALS\PROTEIN\VITAMINS
     Dosage: 200 MILLILITER, QD ( EVENING (16:00 TO 20:00))
     Dates: start: 20241011
  15. PROMETHAZINE HYDROCHLORIDE [Concomitant]
     Active Substance: PROMETHAZINE HYDROCHLORIDE
     Dosage: 25 MILLIGRAM, BID  (LUNCH (10:00 TO 14:00), EVENING (16:00 TO 20:00))
     Dates: start: 20230925
  16. CARBAMAZEPINE [Concomitant]
     Active Substance: CARBAMAZEPINE
     Dosage: 300 MILLIGRAM, BID  (MORNING (06:00 TO 10:00), LUNCH (10:00 TO 14:00).)
     Dates: start: 20231020
  17. METHYLPHENIDATE HYDROCHLORIDE [Concomitant]
     Active Substance: METHYLPHENIDATE HYDROCHLORIDE
     Dosage: 90 MILLIGRAM, AM (MORNING (06:00 TO 10:00))
     Dates: start: 20240711
  18. CLONAZEPAM [Concomitant]
     Active Substance: CLONAZEPAM
     Dosage: 2 MILLIGRAM, BID (LUNCH (10:00 TO 14:00), EVENING (16:00 TO 20:00))
     Dates: start: 20250113
  19. GLYCERIN [Concomitant]
     Active Substance: GLYCERIN
     Dosage: 4 GRAM, PRN (MAX DOSE IN 24 HOURS: 8G. MIN GAP BETWEEN ADMINISTRATIONS: 12 HOURS.)
  20. POLYETHYLENE GLYCOL 3350\POTASSIUM CHLORIDE\SODIUM BICARBONATE\SODIUM [Concomitant]
     Active Substance: POLYETHYLENE GLYCOL 3350\POTASSIUM CHLORIDE\SODIUM BICARBONATE\SODIUM CHLORIDE
     Dosage: 1 DOSAGE FORM, BID (MORNING (06:00 TO 10:00), EVENING (16:00 TO 20:00). TAKE ONE SACHET,OVER 1 TO 2 MINUTES)
     Dates: start: 20250219

REACTIONS (8)
  - Surgery [Unknown]
  - Hypophagia [Unknown]
  - Fluid intake reduced [Unknown]
  - GM2 gangliosidosis [Unknown]
  - Leukocytosis [Recovered/Resolved]
  - Neutrophilia [Recovered/Resolved]
  - Vomiting [Unknown]
  - Blood pressure decreased [Recovering/Resolving]

NARRATIVE: CASE EVENT DATE: 20190501
